FAERS Safety Report 17189149 (Version 2)
Quarter: 2020Q4

REPORT INFORMATION
  Report Type: Spontaneous
  Country: US (occurrence: US)
  Receive Date: 20191223
  Receipt Date: 20201217
  Transmission Date: 20210113
  Serious: Yes (Other)
  Sender: FDA-Public Use
  Company Number: NVSC2019US076488

PATIENT
  Sex: Male

DRUGS (1)
  1. VOTRIENT [Suspect]
     Active Substance: PAZOPANIB HYDROCHLORIDE
     Indication: NEOPLASM MALIGNANT
     Dosage: 800 MG, QD
     Route: 048
     Dates: start: 20191022

REACTIONS (5)
  - COVID-19 [Recovering/Resolving]
  - Weight decreased [Unknown]
  - Full blood count decreased [Unknown]
  - Taste disorder [Unknown]
  - Abdominal pain upper [Unknown]
